FAERS Safety Report 5879626-4 (Version None)
Quarter: 2008Q3

REPORT INFORMATION
  Report Type: 
  Country: None (occurrence: None)
  Receive Date: 20080912
  Receipt Date: 20080911
  Transmission Date: 20090109
  Serious: Yes (Hospitalization)
  Sender: FDA-Public Use
  Company Number: FR-EISAI MEDICAL RESEARCH-E2020-03338-SPO-FR

PATIENT
  Age: 76 Year
  Sex: Female

DRUGS (1)
  1. ARICEPT [Suspect]
     Indication: DEMENTIA ALZHEIMER'S TYPE
     Route: 048
     Dates: start: 20080301, end: 20080501

REACTIONS (3)
  - ANOREXIA [None]
  - MUSCLE SPASMS [None]
  - RHABDOMYOLYSIS [None]
